FAERS Safety Report 8838498 (Version 1)
Quarter: 2012Q4

REPORT INFORMATION
  Report Type: 
  Country: CN (occurrence: CN)
  Receive Date: 20121012
  Receipt Date: 20121012
  Transmission Date: 20130627
  Serious: Yes (Death, Other)
  Sender: FDA-Public Use
  Company Number: PHHY2012CN090436

PATIENT

DRUGS (2)
  1. CICLOSPORIN [Suspect]
     Indication: APLASTIC ANAEMIA
  2. ANTITHYMOCYTE IMMUNOGLOBULIN [Suspect]
     Indication: APLASTIC ANAEMIA

REACTIONS (2)
  - Sepsis [Fatal]
  - Renal failure acute [Unknown]
